FAERS Safety Report 4926461-7 (Version None)
Quarter: 2006Q1

REPORT INFORMATION
  Report Type: 
  Country: None (occurrence: None)
  Receive Date: 20060228
  Receipt Date: 20051129
  Transmission Date: 20060701
  Serious: No
  Sender: FDA-Public Use
  Company Number: US-GLAXOSMITHKLINE-A0584100A

PATIENT
  Age: 72 Year
  Sex: Male
  Weight: 72.7 kg

DRUGS (2)
  1. LAMICTAL [Suspect]
     Indication: BIPOLAR DISORDER
     Dosage: 100MG PER DAY
     Route: 048
     Dates: start: 20050225
  2. NO CONCURRENT MEDICATION [Concomitant]

REACTIONS (1)
  - CARBON DIOXIDE INCREASED [None]
